FAERS Safety Report 24714315 (Version 1)
Quarter: 2024Q4

REPORT INFORMATION
  Report Type: Spontaneous
  Country: US (occurrence: US)
  Receive Date: 20241209
  Receipt Date: 20241209
  Transmission Date: 20250114
  Serious: Yes (Other)
  Sender: ABBVIE
  Company Number: US-ABBVIE-6033666

PATIENT
  Sex: Female

DRUGS (1)
  1. LILETTA [Suspect]
     Active Substance: LEVONORGESTREL
     Indication: Product used for unknown indication
     Dosage: TIME INTERVAL: AS NECESSARY: LEVONORGESTREL IUD 20.4 MCG/24 HOURS (8 YRS). LAST ADMIN DATE 2024
     Route: 015
     Dates: start: 20240405

REACTIONS (6)
  - Uterine perforation [Unknown]
  - Device dislocation [Unknown]
  - Abdominal discomfort [Unknown]
  - Anorectal discomfort [Unknown]
  - Abdominal pain [Unknown]
  - Proctalgia [Unknown]

NARRATIVE: CASE EVENT DATE: 20240101
